FAERS Safety Report 4779363-3 (Version None)
Quarter: 2005Q3

REPORT INFORMATION
  Report Type: 
  Country: None (occurrence: None)
  Receive Date: 20050914
  Receipt Date: 20050629
  Transmission Date: 20060218
  Serious: Yes (Other)
  Sender: FDA-Public Use
  Company Number: 409468

PATIENT
  Age: 54 Year
  Sex: Female
  Weight: 49.9 kg

DRUGS (5)
  1. BONIVA [Suspect]
     Indication: OSTEOPOROSIS PROPHYLAXIS
     Dosage: 150 MG 1 PER MONTH ORAL
     Route: 048
     Dates: start: 20050525
  2. SYNTHROID [Concomitant]
  3. ASPIRIN [Concomitant]
  4. ACIPHEX [Concomitant]
  5. SOY EXTRACT (SOY EXTRACT) [Concomitant]

REACTIONS (2)
  - MIGRAINE [None]
  - PHOTOSENSITIVITY REACTION [None]
